FAERS Safety Report 11637352 (Version 1)
Quarter: 2015Q4

REPORT INFORMATION
  Report Type: Spontaneous
  Country: CN (occurrence: CN)
  Receive Date: 20151016
  Receipt Date: 20151016
  Transmission Date: 20160304
  Serious: Yes (Other)
  Sender: FDA-Public Use
  Company Number: CN-BRACCO-002038

PATIENT
  Age: 84 Year
  Sex: Female
  Weight: 36 kg

DRUGS (1)
  1. IOPAMIRO [Suspect]
     Active Substance: IOPAMIDOL
     Indication: COMPUTERISED TOMOGRAM
     Route: 041
     Dates: start: 20150325, end: 20150325

REACTIONS (1)
  - Epidermolysis bullosa [Recovering/Resolving]

NARRATIVE: CASE EVENT DATE: 20150402
